FAERS Safety Report 24180388 (Version 5)
Quarter: 2024Q4

REPORT INFORMATION
  Report Type: Spontaneous
  Country: DE (occurrence: DE)
  Receive Date: 20240806
  Receipt Date: 20241029
  Transmission Date: 20250115
  Serious: Yes (Other)
  Sender: NOVARTIS
  Company Number: DE-002147023-NVSC2024DE154857

PATIENT
  Sex: Male

DRUGS (1)
  1. LEQVIO [Suspect]
     Active Substance: INCLISIRAN SODIUM
     Indication: Product used for unknown indication
     Dosage: 284 MG (INJECTION)
     Route: 065
     Dates: start: 20240724

REACTIONS (23)
  - Cerebral disorder [Unknown]
  - Anaphylactic shock [Unknown]
  - Fatigue [Unknown]
  - Chills [Unknown]
  - Feeling hot [Unknown]
  - Nausea [Unknown]
  - Headache [Unknown]
  - Eye irritation [Unknown]
  - Asthenia [Unknown]
  - Renal pain [Unknown]
  - Respiratory rate decreased [Unknown]
  - Oropharyngeal pain [Unknown]
  - Dizziness [Unknown]
  - Rhinorrhoea [Unknown]
  - Injection site pain [Unknown]
  - Restlessness [Unknown]
  - Throat irritation [Unknown]
  - Depression [Unknown]
  - Feeling abnormal [Unknown]
  - Hepatic pain [Unknown]
  - Blood creatine phosphokinase increased [Unknown]
  - Nervous system disorder [Unknown]
  - Peripheral coldness [Unknown]

NARRATIVE: CASE EVENT DATE: 20240701
